FAERS Safety Report 4984308-7 (Version None)
Quarter: 2006Q2

REPORT INFORMATION
  Report Type: 
  Country: None (occurrence: None)
  Receive Date: 20060420
  Receipt Date: 20060410
  Transmission Date: 20061013
  Serious: Yes (Other)
  Sender: FDA-Public Use
  Company Number: 2006018383

PATIENT
  Age: 27 Year
  Sex: Female

DRUGS (4)
  1. AZITHROMYCIN [Suspect]
     Indication: PHARYNGITIS
     Dosage: 500 MG (500 MG, DAILY), ORAL
     Route: 048
     Dates: start: 20060128, end: 20060128
  2. TAMIFLU [Suspect]
     Indication: INFLUENZA
     Dosage: 150 MG (75 MG, 2 IN 1 D), ORAL
     Route: 048
     Dates: start: 20060128, end: 20060129
  3. TRANSAMIN (TRANEAMINC ACID) [Concomitant]
  4. CALONAL (PARACETAMOL) [Concomitant]

REACTIONS (2)
  - ENTEROCOLITIS HAEMORRHAGIC [None]
  - REFUSAL OF TREATMENT BY PATIENT [None]
